FAERS Safety Report 4372441-2 (Version None)
Quarter: 2004Q2

REPORT INFORMATION
  Report Type: 
  Country: None (occurrence: None)
  Receive Date: 20040602
  Receipt Date: 20040519
  Transmission Date: 20050107
  Serious: Yes (Hospitalization)
  Sender: FDA-Public Use
  Company Number: 04P-087-0261443-00

PATIENT
  Age: 42 Year
  Sex: Male
  Weight: 63.5 kg

DRUGS (7)
  1. AKINETON [Suspect]
     Indication: SCHIZOPHRENIA
     Dosage: ORAL
     Route: 048
  2. LODOPIN (ZOTEPINE) (ZOTEPINE) [Suspect]
     Indication: SCHIZOPHRENIA
     Dosage: ORAL
     Route: 048
  3. QUETIAPINE [Suspect]
     Dosage: ORAL
     Route: 048
  4. SULTOPRIDE [Suspect]
     Indication: SCHIZOPHRENIA
     Dosage: ORAL
     Route: 048
  5. CHLORPROMAZINE HYDROCHLORIED [Suspect]
     Indication: SCHIZOPHRENIA
     Dosage: ORAL
     Route: 048
  6. BROMPERIDOL [Suspect]
     Indication: SCHIZOPHRENIA
     Dosage: ORAL
     Route: 048
  7. HALOPERIDOL DECANOATE [Suspect]
     Indication: SCHIZOPHRENIA
     Dosage: INTRAMUSCULAR
     Route: 030

REACTIONS (6)
  - DIABETES MELLITUS [None]
  - EXERCISE LACK OF [None]
  - HYPERPHAGIA [None]
  - INADEQUATE DIET [None]
  - TYPE V HYPERLIPIDAEMIA [None]
  - XANTHOMA [None]
